FAERS Safety Report 9892226 (Version 1)
Quarter: 2014Q1

REPORT INFORMATION
  Report Type: Spontaneous
  Country: US (occurrence: US)
  Receive Date: 20140212
  Receipt Date: 20140212
  Transmission Date: 20141002
  Serious: Yes (Life-Threatening, Hospitalization)
  Sender: FDA-Public Use
  Company Number: US-PFIZER INC-2014037135

PATIENT
  Age: 40 Year
  Sex: Male

DRUGS (10)
  1. VERAPAMIL HCL [Suspect]
     Dosage: 3.6 G, UNK
     Route: 048
  2. OXYCODONE HYDROCHLORIDE [Suspect]
     Dosage: UNK
     Route: 048
  3. AMLODIPINE BESILATE [Suspect]
     Dosage: UNK
     Route: 048
  4. VALSARTAN [Suspect]
     Dosage: UNK
     Route: 048
  5. SIMVASTATIN [Suspect]
     Dosage: UNK
     Route: 048
  6. METFORMIN HCL [Suspect]
     Dosage: UNK
     Route: 048
  7. TRAZODONE [Suspect]
     Dosage: UNK
     Route: 048
  8. FLUOXETINE [Suspect]
     Dosage: 400 MG, UNK
     Route: 048
  9. CARBAMAZEPINE [Suspect]
     Dosage: 1800 MG, UNK
     Route: 048
  10. ALCOHOL [Concomitant]
     Dosage: UNK
     Route: 048

REACTIONS (6)
  - Overdose [Unknown]
  - Shock [Unknown]
  - Suicide attempt [Unknown]
  - Non-cardiogenic pulmonary oedema [Unknown]
  - Acute respiratory distress syndrome [Unknown]
  - Acute myocardial infarction [Unknown]
